FAERS Safety Report 6153419-5 (Version None)
Quarter: 2009Q2

REPORT INFORMATION
  Report Type: 
  Country: None (occurrence: None)
  Receive Date: 20090409
  Receipt Date: 20090409
  Transmission Date: 20091009
  Serious: Yes (Death, Hospitalization)
  Sender: FDA-Public Use
  Company Number: None

PATIENT
  Sex: Female
  Weight: 7 kg

DRUGS (17)
  1. VINCRISTINE [Suspect]
     Dosage: 0.05 MG/KG/DOSE  0.3 MG
  2. CISPLATIN [Suspect]
     Dosage: 3.5 MG/KG/DAY=23MG
  3. METHOTREXATE [Suspect]
     Dosage: 270MG/KG/DOSE 1775 MG
  4. DOPAMINE HCL [Concomitant]
  5. PRISMASATE [Concomitant]
  6. ANTIGOAG CITRATE/DEXTROSE [Concomitant]
  7. CALCIUM CHLORIDE [Concomitant]
  8. MILRINONE [Concomitant]
  9. NOREPINEPHRINE [Concomitant]
  10. SODIUM BICARB [Concomitant]
  11. LUCRI-LUBE OINTMENT [Concomitant]
  12. REGLAN [Concomitant]
  13. PHENOBARBITAL [Concomitant]
  14. SEPTRA [Concomitant]
  15. HYDROCORTISONE [Concomitant]
  16. LEUCOVORIN CALCIUM [Concomitant]
  17. NEUPOGEN [Concomitant]

REACTIONS (14)
  - ACIDOSIS [None]
  - BRADYCARDIA [None]
  - BRONCHIAL SECRETION RETENTION [None]
  - FLUID OVERLOAD [None]
  - HYPERCAPNIA [None]
  - HYPOTENSION [None]
  - HYPOXIA [None]
  - IMMUNOSUPPRESSION [None]
  - INFLAMMATION [None]
  - MULTI-ORGAN FAILURE [None]
  - PULMONARY HAEMORRHAGE [None]
  - RESPIRATORY DISTRESS [None]
  - RESPIRATORY SYNCYTIAL VIRUS INFECTION [None]
  - URINE OUTPUT DECREASED [None]
